FAERS Safety Report 8085875-X (Version None)
Quarter: 2012Q1

REPORT INFORMATION
  Report Type: 
  Country: None (occurrence: None)
  Receive Date: 20120128
  Receipt Date: 20110422
  Transmission Date: 20120608
  Serious: Yes (Hospitalization)
  Sender: FDA-Public Use
  Company Number: US-ABBOTT-11P-163-0720506-00

PATIENT
  Sex: Female
  Weight: 47.67 kg

DRUGS (3)
  1. ADDERALL 5 [Concomitant]
     Indication: ATTENTION DEFICIT/HYPERACTIVITY DISORDER
  2. HUMIRA [Suspect]
     Dates: start: 20101227
  3. HUMIRA [Suspect]
     Indication: CROHN'S DISEASE
     Route: 058
     Dates: start: 20090101, end: 20100101

REACTIONS (2)
  - INCORRECT DOSE ADMINISTERED [None]
  - ABDOMINAL PAIN [None]
